FAERS Safety Report 9344575 (Version 4)
Quarter: 2013Q3

REPORT INFORMATION
  Report Type: Spontaneous
  Country: US (occurrence: US)
  Receive Date: 20130612
  Receipt Date: 20130802
  Transmission Date: 20140515
  Serious: Yes (Hospitalization, Other)
  Sender: FDA-Public Use
  Company Number: US-PFIZER INC-2013177251

PATIENT
  Age: 45 Year
  Sex: Female
  Weight: 77 kg

DRUGS (9)
  1. NEURONTIN [Suspect]
     Indication: CHRONIC INFLAMMATORY DEMYELINATING POLYRADICULONEUROPATHY
     Dosage: 600 MG, 3X/DAY
     Route: 048
     Dates: start: 2012, end: 201304
  2. NEURONTIN [Suspect]
     Indication: NEURALGIA
  3. LEVOTHYROXINE [Concomitant]
     Indication: HYPOTHYROIDISM
     Dosage: UNK
  4. TRAMADOL [Concomitant]
     Dosage: 50 MG, 2X/DAY
     Route: 048
  5. LASIX [Concomitant]
     Dosage: 40 MG, 2X/DAY
     Route: 048
  6. TRICOR [Concomitant]
     Dosage: 145 MG, 1X/DAY
     Route: 048
  7. SYNTHROID [Concomitant]
     Dosage: 225 UG, 1X/DAY
  8. NEXIUM [Concomitant]
     Dosage: 40 MG, 1X/DAY
  9. IRON [Concomitant]
     Dosage: 15 MG/ML, 1X/DAY
     Route: 048

REACTIONS (6)
  - Local swelling [Not Recovered/Not Resolved]
  - Hypoaesthesia [Not Recovered/Not Resolved]
  - Pain [Recovering/Resolving]
  - Gait disturbance [Recovering/Resolving]
  - Fall [Recovering/Resolving]
  - Drug ineffective [Unknown]
